FAERS Safety Report 7333716-8 (Version None)
Quarter: 2011Q1

REPORT INFORMATION
  Report Type: 
  Country: None (occurrence: None)
  Receive Date: 20110306
  Receipt Date: 20110210
  Transmission Date: 20110831
  Serious: No
  Sender: FDA-Public Use
  Company Number: US-BAYER-2011-015170

PATIENT
  Age: 79 Year
  Sex: Male
  Weight: 68 kg

DRUGS (3)
  1. ALEVE (CAPLET) [Suspect]
     Indication: PAIN
     Dosage: 1 DF, BID, TOOK 1DF EVERY 12 HOURS
     Route: 048
     Dates: start: 20110209
  2. MUSCLE RELAXANT [Concomitant]
  3. BLOOD PRESSURE MEDICATION (NOS) [Concomitant]

REACTIONS (1)
  - PAIN [None]
